FAERS Safety Report 6265060-4 (Version None)
Quarter: 2009Q3

REPORT INFORMATION
  Report Type: 
  Country: None (occurrence: None)
  Receive Date: 20090713
  Receipt Date: 20090630
  Transmission Date: 20100115
  Serious: Yes (Other)
  Sender: FDA-Public Use
  Company Number: GB-PFIZER INC-2009233908

PATIENT
  Age: 77 Year

DRUGS (11)
  1. PREGABALIN [Suspect]
     Indication: AGITATION
     Dosage: 75 MG, 2X/DAY
     Route: 048
     Dates: start: 20090607, end: 20090609
  2. PREGABALIN [Suspect]
     Indication: ANXIETY
  3. AMLODIPINE [Concomitant]
     Dosage: 4 MG, 1X/DAY
     Route: 048
  4. ATORVASTATIN [Concomitant]
     Dosage: 20 MG, 1X/DAY
     Route: 048
  5. DOSULEPIN [Concomitant]
     Dosage: 75 MG, 1X/DAY
  6. FOLIC ACID [Concomitant]
     Dosage: 5 MG, 1X/DAY
     Route: 048
  7. FUROSEMIDE [Concomitant]
     Dosage: 80 MG, 1X/DAY
     Route: 048
  8. OLANZAPINE [Concomitant]
     Indication: ANXIETY
     Dosage: 7.5 MG, 1X/DAY
     Route: 048
  9. OLANZAPINE [Concomitant]
     Indication: HALLUCINATION
  10. OMEPRAZOLE [Concomitant]
     Dosage: 20 MG, 1X/DAY
     Route: 048
  11. PERINDOPRIL [Concomitant]
     Dosage: 4 MG, 1X/DAY
     Route: 048

REACTIONS (2)
  - FALL [None]
  - GAIT DISTURBANCE [None]
